FAERS Safety Report 12814440 (Version 2)
Quarter: 2017Q4

REPORT INFORMATION
  Report Type: Report from Study
  Country: US (occurrence: US)
  Receive Date: 20161006
  Receipt Date: 20171004
  Transmission Date: 20180320
  Serious: No
  Sender: FDA-Public Use
  Company Number: US-AMGEN-USASL2016090864

PATIENT
  Age: 87 Year
  Sex: Female

DRUGS (1)
  1. PROLIA [Suspect]
     Active Substance: DENOSUMAB
     Indication: OSTEOPOROSIS
     Dosage: UNK
     Route: 065
     Dates: start: 201507, end: 201508

REACTIONS (7)
  - Pain in extremity [Recovering/Resolving]
  - Blood pressure abnormal [Unknown]
  - Drug dose omission [Unknown]
  - Pain [Unknown]
  - Gait disturbance [Recovering/Resolving]
  - Mobility decreased [Unknown]
  - Muscle spasms [Recovering/Resolving]

NARRATIVE: CASE EVENT DATE: 201606
